FAERS Safety Report 6531473-6 (Version None)
Quarter: 2010Q1

REPORT INFORMATION
  Report Type: 
  Country: None (occurrence: None)
  Receive Date: 20100108
  Receipt Date: 20091210
  Transmission Date: 20100710
  Serious: No
  Sender: FDA-Public Use
  Company Number: US-BAYER-200917646BCC

PATIENT
  Age: 83 Year
  Sex: Female
  Weight: 47 kg

DRUGS (7)
  1. ALEVE [Suspect]
     Indication: BACK PAIN
     Dosage: TOTAL DAILY DOSE: 400 MG  UNIT DOSE: 220 MG
     Route: 048
     Dates: start: 20090301
  2. GOLDLINE ENTERIC BABY ASPIRIN [Concomitant]
     Route: 065
  3. SUNMARK STOOL SOFTENER [Concomitant]
     Route: 065
  4. CADUET CABS [Concomitant]
     Route: 065
  5. THERAGRAN-M VITAMIN SUPPLETMENT [Concomitant]
     Route: 065
  6. COZAAR [Concomitant]
     Route: 065
  7. VENLAFAXINE [Concomitant]
     Route: 065

REACTIONS (2)
  - BACK PAIN [None]
  - PRURITUS [None]
